FAERS Safety Report 6801282-9 (Version None)
Quarter: 2010Q2

REPORT INFORMATION
  Report Type: 
  Country: None (occurrence: None)
  Receive Date: 20100629
  Receipt Date: 20100506
  Transmission Date: 20101027
  Serious: No
  Sender: FDA-Public Use
  Company Number: A0859598A

PATIENT
  Age: 19 Year
  Sex: Female

DRUGS (2)
  1. LAMICTAL XR [Suspect]
     Indication: EPILEPSY
     Dosage: 500MG UNKNOWN
     Route: 048
     Dates: start: 20100101
  2. YAZ [Concomitant]

REACTIONS (1)
  - METRORRHAGIA [None]
